FAERS Safety Report 10048602 (Version 1)
Quarter: 2014Q1

REPORT INFORMATION
  Report Type: Spontaneous
  Country: US (occurrence: US)
  Receive Date: 20140331
  Receipt Date: 20140331
  Transmission Date: 20141002
  Serious: No
  Sender: FDA-Public Use
  Company Number: US-TEVA-472166USA

PATIENT
  Sex: Female

DRUGS (2)
  1. PARAGARD 380A [Suspect]
     Indication: CONTRACEPTION
     Route: 015
  2. BIRTH CONTROL PILLS [Suspect]
     Indication: CONTRACEPTION

REACTIONS (2)
  - Hormone level abnormal [Unknown]
  - Menorrhagia [Unknown]
